FAERS Safety Report 9779234 (Version 1)
Quarter: 2013Q4

REPORT INFORMATION
  Report Type: Spontaneous
  Country: IN (occurrence: IN)
  Receive Date: 20131223
  Receipt Date: 20131223
  Transmission Date: 20140711
  Serious: Yes (Other)
  Sender: FDA-Public Use
  Company Number: IN-MYLANLABS-2013S1028127

PATIENT
  Age: 46 Year
  Sex: Male

DRUGS (3)
  1. CICLOSPORIN [Suspect]
     Route: 065
  2. AMLODIPINE [Suspect]
     Route: 065
  3. PREDNISOLONE [Concomitant]
     Dosage: 40MG 5 TABLETS TWICE DAILY
     Route: 065

REACTIONS (2)
  - Gingival hyperplasia [Recovering/Resolving]
  - Drug abuse [Recovering/Resolving]
